FAERS Safety Report 6721956-8 (Version None)
Quarter: 2010Q2

REPORT INFORMATION
  Report Type: 
  Country: None (occurrence: None)
  Receive Date: 20100512
  Receipt Date: 20100505
  Transmission Date: 20101027
  Serious: Yes (Hospitalization)
  Sender: FDA-Public Use
  Company Number: A0858377A

PATIENT
  Age: 70 Year
  Sex: Male

DRUGS (16)
  1. ADVAIR DISKUS 100/50 [Suspect]
     Indication: ASTHMA
     Dosage: 1PUFF TWICE PER DAY
     Route: 055
     Dates: start: 20070101
  2. IRON PILLS [Concomitant]
  3. VITAMIN C [Concomitant]
  4. FLUTICASONE NASAL SPRAY [Concomitant]
  5. VITAMIN D3 [Concomitant]
  6. ALLOPURINOL [Concomitant]
  7. LISINOPRIL [Concomitant]
  8. FOLIC ACID [Concomitant]
  9. LEVETIRACETAM [Concomitant]
  10. SIMVASTATIN [Concomitant]
  11. FINASTERIDE [Concomitant]
  12. IMIPRAMINE [Concomitant]
  13. LANTUS [Concomitant]
  14. HUMALOG [Concomitant]
  15. OMEPRAZOLE [Concomitant]
  16. PLAVIX [Concomitant]

REACTIONS (2)
  - CEREBROVASCULAR ACCIDENT [None]
  - TRANSIENT ISCHAEMIC ATTACK [None]
